FAERS Safety Report 17528047 (Version 1)
Quarter: 2020Q1

REPORT INFORMATION
  Report Type: Spontaneous
  Country: US (occurrence: US)
  Receive Date: 20200304
  Receipt Date: 20200304
  Transmission Date: 20200409
  Serious: No
  Sender: FDA-Public Use
  Company Number: None

PATIENT
  Age: 37 Year
  Sex: Female

DRUGS (1)
  1. EPCLUSA [Suspect]
     Active Substance: SOFOSBUVIR\VELPATASVIR
     Dosage: ?          OTHER DOSE:400-100MG;?
     Route: 048
     Dates: start: 201912

REACTIONS (5)
  - Dizziness [None]
  - Fatigue [None]
  - Malaise [None]
  - Headache [None]
  - Gastric disorder [None]

NARRATIVE: CASE EVENT DATE: 20200304
